FAERS Safety Report 23670864 (Version 1)
Quarter: 2024Q1

REPORT INFORMATION
  Report Type: Report from Study
  Country: CA (occurrence: CA)
  Receive Date: 20240326
  Receipt Date: 20240326
  Transmission Date: 20240410
  Serious: Yes (Other)
  Sender: FDA-Public Use
  Company Number: CA-JAMP PHARMA CORPORATION-2023-JAM-CA-02531

PATIENT
  Age: 69 Year
  Sex: Female

DRUGS (1)
  1. SIMLANDI [Suspect]
     Active Substance: ADALIMUMAB-RYVK
     Indication: Colitis ulcerative
     Dosage: 40 MILLIGRAM, EVERY 2 WEEKS
     Route: 058

REACTIONS (15)
  - Haematochezia [Not Recovered/Not Resolved]
  - Anorectal discomfort [Recovering/Resolving]
  - Eye irritation [Not Recovered/Not Resolved]
  - Oral discomfort [Not Recovered/Not Resolved]
  - Vulvovaginal burning sensation [Not Recovered/Not Resolved]
  - Anal pruritus [Recovering/Resolving]
  - Eye pruritus [Recovering/Resolving]
  - Oral pruritus [Recovering/Resolving]
  - Vulvovaginal pruritus [Recovering/Resolving]
  - Headache [Unknown]
  - Anxiety [Unknown]
  - Abdominal discomfort [Unknown]
  - Mucous stools [Unknown]
  - Product quality issue [Unknown]
  - Burning sensation [Not Recovered/Not Resolved]

NARRATIVE: CASE EVENT DATE: 20230401
